FAERS Safety Report 11441153 (Version 1)
Quarter: 2015Q3

REPORT INFORMATION
  Report Type: Spontaneous
  Country: US (occurrence: US)
  Receive Date: 20150821
  Receipt Date: 20150821
  Transmission Date: 20151125
  Serious: Yes (Hospitalization)
  Sender: FDA-Public Use
  Company Number: US-ELI_LILLY_AND_COMPANY-US200802000616

PATIENT
  Age: 62 Year
  Sex: Male

DRUGS (7)
  1. CYMBALTA [Suspect]
     Active Substance: DULOXETINE HYDROCHLORIDE
     Dosage: 60 MG, DAILY (1/D)
     Dates: start: 200801, end: 2008
  2. VYTORIN [Concomitant]
     Active Substance: EZETIMIBE\SIMVASTATIN
  3. METOPROLOL [Concomitant]
     Active Substance: METOPROLOL
  4. AMBIEN [Concomitant]
     Active Substance: ZOLPIDEM TARTRATE
  5. PEPCID [Concomitant]
     Active Substance: FAMOTIDINE
  6. LISINOPRIL. [Concomitant]
     Active Substance: LISINOPRIL
  7. LASIX [Concomitant]
     Active Substance: FUROSEMIDE

REACTIONS (1)
  - Seizure [Recovered/Resolved]

NARRATIVE: CASE EVENT DATE: 2008
